FAERS Safety Report 17841208 (Version 2)
Quarter: 2020Q2

REPORT INFORMATION
  Report Type: Spontaneous
  Country: GB (occurrence: GB)
  Receive Date: 20200529
  Receipt Date: 20200617
  Transmission Date: 20200714
  Serious: Yes (Hospitalization, Other)
  Sender: FDA-Public Use
  Company Number: GB-VELOXIS PHARMACEUTICALS-2020VELGB-000474

PATIENT
  Age: 67 Year
  Sex: Male

DRUGS (16)
  1. AMPHOTERICIN B, LIPOSOME [Concomitant]
     Active Substance: AMPHOTERICIN B
     Indication: FUNGAL INFECTION
     Dosage: 5 MILLIGRAM/KILOGRAM, QD
     Route: 065
     Dates: start: 2014
  2. AMPHOTERICIN B, LIPOSOME [Concomitant]
     Active Substance: AMPHOTERICIN B
     Indication: PHAEOHYPHOMYCOSIS
  3. ENVARSUS XR [Suspect]
     Active Substance: TACROLIMUS
     Indication: RENAL TRANSPLANT
     Dosage: UNK UNK, UNKNOWN FREQ.
     Route: 065
     Dates: start: 2014
  4. METHYLPREDNISOLONE. [Suspect]
     Active Substance: METHYLPREDNISOLONE
     Indication: IMMUNOSUPPRESSANT DRUG THERAPY
     Dosage: 500 MILLIGRAM
     Route: 042
     Dates: start: 2014
  5. VORICONAZOLE. [Concomitant]
     Active Substance: VORICONAZOLE
     Indication: PHAEOHYPHOMYCOSIS
     Dosage: CEMENT SPACER CONTAINING VORICONAZOLE IN THE RIGHT DISTAL FIBULA
     Route: 042
     Dates: start: 2014
  6. POSACONAZOLE [Suspect]
     Active Substance: POSACONAZOLE
     Dosage: GASTRO-RESISTANT TABLETS; 300MG BID FOR TWO DOSES, FOLLOWED BY 300MG DAILY
     Route: 048
     Dates: start: 2014, end: 2014
  7. VORICONAZOLE. [Suspect]
     Active Substance: VORICONAZOLE
     Dosage: 4 MILLIGRAM/KILOGRAM, Q12H SUBSEQUENT DOSES
     Route: 042
     Dates: start: 2014
  8. POSACONAZOLE [Suspect]
     Active Substance: POSACONAZOLE
     Indication: PHAEOHYPHOMYCOSIS
     Dosage: 300 MILLIGRAM, QD
     Route: 048
     Dates: start: 2014
  9. ALEMTUZUMAB [Suspect]
     Active Substance: ALEMTUZUMAB
     Indication: IMMUNOSUPPRESSANT DRUG THERAPY
     Dosage: 30 MILLIGRAM
     Route: 058
     Dates: start: 2014
  10. POSACONAZOLE [Suspect]
     Active Substance: POSACONAZOLE
     Dosage: 300 MILLIGRAM, QD DISCONTINUED AFTER EIGHT DOSES (DAY 17)
     Route: 042
     Dates: start: 2014, end: 2014
  11. FLUCYTOSINE. [Concomitant]
     Active Substance: FLUCYTOSINE
     Indication: PHAEOHYPHOMYCOSIS
     Dosage: UNK
     Route: 042
     Dates: start: 2014
  12. AMOXICILLIN. [Concomitant]
     Active Substance: AMOXICILLIN
     Indication: PHAEOHYPHOMYCOSIS
     Dosage: 1 GRAM, Q8H
     Route: 048
     Dates: start: 2014
  13. ENVARSUS XR [Suspect]
     Active Substance: TACROLIMUS
     Indication: IMMUNOSUPPRESSANT DRUG THERAPY
  14. PREDNISOLONE. [Suspect]
     Active Substance: PREDNISOLONE
     Indication: IMMUNOSUPPRESSANT DRUG THERAPY
     Dosage: 20 MILLIGRAM, QD
     Route: 065
     Dates: start: 2014
  15. VORICONAZOLE. [Suspect]
     Active Substance: VORICONAZOLE
     Indication: PHAEOHYPHOMYCOSIS
     Dosage: 6 MILLIGRAM/KILOGRAM, FOR THE INITIAL TWO DOSES
     Route: 042
     Dates: start: 2014, end: 2014
  16. FLUCYTOSINE. [Concomitant]
     Active Substance: FLUCYTOSINE
     Dosage: 1.5 GRAM, Q6H
     Route: 048
     Dates: start: 2014

REACTIONS (7)
  - Enterococcal infection [Recovering/Resolving]
  - Brain abscess [Recovered/Resolved with Sequelae]
  - Pain in extremity [Unknown]
  - Fungal infection [Recovering/Resolving]
  - Drug ineffective [Unknown]
  - Blood alkaline phosphatase increased [Unknown]
  - Phaeohyphomycosis [Recovered/Resolved with Sequelae]
